FAERS Safety Report 19139881 (Version 2)
Quarter: 2022Q2

REPORT INFORMATION
  Report Type: Spontaneous
  Country: IN (occurrence: IN)
  Receive Date: 20210415
  Receipt Date: 20220506
  Transmission Date: 20220721
  Serious: Yes (Hospitalization, Other)
  Sender: FDA-Public Use
  Company Number: IN-SUN PHARMACEUTICAL INDUSTRIES LTD-2021R1-291247

PATIENT
  Age: 48 Year
  Sex: Male

DRUGS (1)
  1. METHOTREXATE [Suspect]
     Active Substance: METHOTREXATE
     Indication: Psoriasis
     Dosage: 15 MILLIGRAM/ SINGLE DOSE
     Route: 065

REACTIONS (5)
  - Pancytopenia [Recovered/Resolved]
  - Oral mucosa erosion [Recovered/Resolved]
  - Nephropathy [Recovered/Resolved]
  - Genital erosion [Recovered/Resolved]
  - Toxicity to various agents [Recovering/Resolving]
